FAERS Safety Report 15926034 (Version 1)
Quarter: 2019Q1

REPORT INFORMATION
  Report Type: Spontaneous
  Country: US (occurrence: US)
  Receive Date: 20190206
  Receipt Date: 20190206
  Transmission Date: 20190417
  Serious: No
  Sender: FDA-Public Use
  Company Number: US-PFIZER INC-2019046037

PATIENT
  Age: 70 Year
  Sex: Female
  Weight: 69.84 kg

DRUGS (4)
  1. IBRANCE [Suspect]
     Active Substance: PALBOCICLIB
     Indication: GASTRIC CANCER
  2. FASLODEX [Concomitant]
     Active Substance: FULVESTRANT
     Indication: BREAST CANCER METASTATIC
     Dosage: UNK (WAS GETTING TWICE A MONTH, NOW SHE GETS THEM ONCE A MONTH)
     Route: 030
     Dates: start: 201809
  3. FASLODEX [Concomitant]
     Active Substance: FULVESTRANT
     Dosage: UNK UNK, MONTHLY (WAS GETTING TWICE A MONTH, NOW SHE GETS THEM ONCE A MONTH)
  4. IBRANCE [Suspect]
     Active Substance: PALBOCICLIB
     Indication: BREAST CANCER METASTATIC
     Dosage: 125 MG, CYCLIC (125 MG FOR 21 DAYS)
     Route: 048
     Dates: start: 201809

REACTIONS (3)
  - Tumour marker increased [Unknown]
  - Product storage error [Unknown]
  - Poor quality product administered [Not Recovered/Not Resolved]

NARRATIVE: CASE EVENT DATE: 20181230
